FAERS Safety Report 11724234 (Version 2)
Quarter: 2015Q4

REPORT INFORMATION
  Report Type: Spontaneous
  Country: US (occurrence: US)
  Receive Date: 20151111
  Receipt Date: 20151118
  Transmission Date: 20160304
  Serious: No
  Sender: FDA-Public Use
  Company Number: US-PFIZER INC-2015382408

PATIENT
  Age: 79 Year
  Sex: Male
  Weight: 101 kg

DRUGS (11)
  1. VIAGRA [Suspect]
     Active Substance: SILDENAFIL CITRATE
     Indication: ERECTILE DYSFUNCTION
     Dosage: 100 MG, AS NEEDED
     Dates: start: 20151105
  2. METRONIDAZOLE. [Concomitant]
     Active Substance: METRONIDAZOLE
     Indication: INFECTION
     Dosage: 500 MG, 3X/DAY
  3. DIOVAN [Concomitant]
     Active Substance: VALSARTAN
     Indication: BLOOD PRESSURE MEASUREMENT
     Dosage: 500 MG, 2X/DAY
  4. CALCIUM + VITAMIN D [Concomitant]
     Active Substance: CALCIUM\VITAMIN D
     Indication: VITAMIN SUPPLEMENTATION
     Dosage: 600 MG, 1X/DAY
  5. AZITHROMYCIN [Concomitant]
     Active Substance: AZITHROMYCIN ANHYDROUS
     Indication: LUNG INFECTION
     Dosage: 500 MG, UNK (MONDAY, WEDNESDAY, FRIDAY)
  6. OMEPRAZOLE. [Concomitant]
     Active Substance: OMEPRAZOLE
     Indication: DYSPEPSIA
     Dosage: 40 MG, 1X/DAY
  7. AZATHIOPRINE. [Concomitant]
     Active Substance: AZATHIOPRINE
     Indication: LIVER DISORDER
     Dosage: 50 MG, 1X/DAY
  8. FISH OIL [Suspect]
     Active Substance: FISH OIL
     Indication: VITAMIN SUPPLEMENTATION
     Dosage: 1200 MG, 1X/DAY
  9. METOPROLOL [Concomitant]
     Active Substance: METOPROLOL
     Indication: CARDIAC DISORDER
     Dosage: 500 MG, 2X/DAY
  10. GABAPENTIN. [Concomitant]
     Active Substance: GABAPENTIN
     Indication: PAIN IN EXTREMITY
     Dosage: 300 MG, 2X/DAY
  11. HYDROCODONE W/IBUPROFEN [Concomitant]
     Active Substance: HYDROCODONE\HYDROCODONE BITARTRATE\IBUPROFEN
     Indication: PAIN
     Dosage: UNK (HYDROCODONE:7.5;IBUPROFEN:200 MG) (ONE IN THE MORNING AND ONE AT NIGHT)

REACTIONS (1)
  - Drug ineffective [Recovered/Resolved]

NARRATIVE: CASE EVENT DATE: 20151105
